FAERS Safety Report 9448150 (Version 2)
Quarter: 2013Q3

REPORT INFORMATION
  Report Type: Spontaneous
  Country: GB (occurrence: None)
  Receive Date: 20130806
  Receipt Date: 20130903
  Transmission Date: 20140515
  Serious: Yes (Life-Threatening, Other)
  Sender: FDA-Public Use
  Company Number: 2013MPI00452

PATIENT
  Age: 22 Year
  Sex: Female

DRUGS (2)
  1. ADCETRIS [Suspect]
     Indication: HODGKIN^S DISEASE RECURRENT
     Dates: start: 20130322, end: 20130324
  2. LANSOPRAZOLE [Concomitant]

REACTIONS (2)
  - Escherichia sepsis [None]
  - Bone marrow transplant [None]
